FAERS Safety Report 7216560-1 (Version None)
Quarter: 2011Q1

REPORT INFORMATION
  Report Type: 
  Country: None (occurrence: None)
  Receive Date: 20110110
  Receipt Date: 20101230
  Transmission Date: 20110831
  Serious: Yes (Death, Other)
  Sender: FDA-Public Use
  Company Number: US-BIOGENIDEC-2010BI003040

PATIENT
  Age: 63 Year
  Sex: Male

DRUGS (1)
  1. TYSABRI [Suspect]
     Indication: MULTIPLE SCLEROSIS
     Route: 042
     Dates: start: 20070723, end: 20100106

REACTIONS (3)
  - BLADDER TRANSITIONAL CELL CARCINOMA STAGE II [None]
  - URINARY TRACT INFECTION [None]
  - GASTROINTESTINAL DISORDER THERAPY [None]
